FAERS Safety Report 10270882 (Version 1)
Quarter: 2014Q2

REPORT INFORMATION
  Report Type: Spontaneous
  Country: US (occurrence: None)
  Receive Date: 20140626
  Receipt Date: 20140626
  Transmission Date: 20141212
  Serious: No
  Sender: FDA-Public Use
  Company Number: None

PATIENT
  Age: 50 Year
  Sex: Female

DRUGS (2)
  1. LEUCOVORIN [Suspect]
  2. OXALIPLATIN [Suspect]

REACTIONS (3)
  - Flushing [None]
  - Throat tightness [None]
  - Erythema [None]
